FAERS Safety Report 20456154 (Version 2)
Quarter: 2022Q1

REPORT INFORMATION
  Report Type: Spontaneous
  Country: US (occurrence: US)
  Receive Date: 20220210
  Receipt Date: 20220307
  Transmission Date: 20220424
  Serious: Yes (Other)
  Sender: FDA-Public Use
  Company Number: US-BIOVITRUM-2022US01841

PATIENT

DRUGS (2)
  1. ANAKINRA [Suspect]
     Active Substance: ANAKINRA
     Indication: Kawasaki^s disease
  2. ANAKINRA [Suspect]
     Active Substance: ANAKINRA
     Indication: Coronary artery disease

REACTIONS (3)
  - Neutropenia [Recovered/Resolved]
  - Injection site rash [Recovered/Resolved]
  - Off label use [Unknown]
